FAERS Safety Report 10661567 (Version 1)
Quarter: 2014Q4

REPORT INFORMATION
  Report Type: Report from Study
  Country: CA (occurrence: CA)
  Receive Date: 20141218
  Receipt Date: 20141218
  Transmission Date: 20150529
  Serious: Yes (Other)
  Sender: FDA-Public Use
  Company Number: PHHY2014CA162607

PATIENT
  Sex: Female

DRUGS (1)
  1. CLOZARIL [Suspect]
     Active Substance: CLOZAPINE
     Indication: PRODUCT USED FOR UNKNOWN INDICATION
     Dosage: UNK
     Route: 048
     Dates: start: 20100428

REACTIONS (5)
  - Left ventricular failure [Unknown]
  - Sinus tachycardia [Unknown]
  - Ischaemia [Unknown]
  - Electrocardiogram repolarisation abnormality [Unknown]
  - Electrocardiogram T wave inversion [Unknown]
